FAERS Safety Report 14977870 (Version 1)
Quarter: 2018Q2

REPORT INFORMATION
  Report Type: Spontaneous
  Country: US (occurrence: US)
  Receive Date: 20180515
  Receipt Date: 20180515
  Transmission Date: 20180711
  Serious: Yes (Hospitalization)
  Sender: FDA-Public Use
  Company Number: None

PATIENT
  Age: 29 Year
  Sex: Female
  Weight: 49.5 kg

DRUGS (1)
  1. MUCINEX DM [Suspect]
     Active Substance: DEXTROMETHORPHAN HYDROBROMIDE\GUAIFENESIN
     Indication: BRONCHITIS
     Dates: start: 20180514, end: 20180514

REACTIONS (9)
  - Malaise [None]
  - Vision blurred [None]
  - Psychomotor hyperactivity [None]
  - Heart rate increased [None]
  - Muscle twitching [None]
  - Confusional state [None]
  - Hypoaesthesia [None]
  - Mydriasis [None]
  - Anxiety [None]

NARRATIVE: CASE EVENT DATE: 20180514
